FAERS Safety Report 7909341-4 (Version None)
Quarter: 2011Q4

REPORT INFORMATION
  Report Type: 
  Country: None (occurrence: None)
  Receive Date: 20111111
  Receipt Date: 20111108
  Transmission Date: 20120403
  Serious: Yes (Other)
  Sender: FDA-Public Use
  Company Number: US-PFIZER INC-2011168359

PATIENT
  Sex: Female

DRUGS (10)
  1. OXYCODONE HCL AND ACETAMINOPHEN [Concomitant]
     Indication: PAIN
     Dosage: UNK
     Dates: start: 20070101, end: 20090101
  2. IBUPROFEN [Concomitant]
     Indication: PAIN
     Dosage: UNK
     Dates: start: 19840101
  3. AMBIEN [Concomitant]
     Indication: INSOMNIA
     Dosage: 5-10MG
     Dates: start: 20050101
  4. TRAZODONE [Concomitant]
     Indication: INSOMNIA
     Dosage: UNK
     Dates: start: 20050101, end: 20100101
  5. CHANTIX [Suspect]
     Dosage: CONTINUING MONTH PACK
     Dates: start: 20090101, end: 20090401
  6. ALLEGRA [Concomitant]
     Indication: HYPERSENSITIVITY
     Dosage: UNK
     Dates: start: 20010101
  7. VALIUM [Concomitant]
     Indication: ANXIETY
     Dosage: UNK
     Dates: start: 20010101
  8. CELEXA [Concomitant]
     Indication: DEPRESSION
     Dosage: UNK
     Dates: start: 20030101
  9. DICLOFENAC [Concomitant]
     Indication: ARTHRITIS
     Dosage: UNK
     Dates: start: 20060101, end: 20110301
  10. CHANTIX [Suspect]
     Indication: SMOKING CESSATION THERAPY
     Dosage: STARTER PACK
     Dates: start: 20080122, end: 20080123

REACTIONS (4)
  - INSOMNIA [None]
  - ANXIETY [None]
  - SUICIDE ATTEMPT [None]
  - DEPRESSION [None]
